FAERS Safety Report 17242650 (Version 1)
Quarter: 2020Q1

REPORT INFORMATION
  Report Type: Spontaneous
  Country: US (occurrence: US)
  Receive Date: 20200106
  Receipt Date: 20200106
  Transmission Date: 20200409
  Serious: Yes (Other)
  Sender: FDA-Public Use
  Company Number: None

PATIENT
  Age: 74 Year
  Sex: Male
  Weight: 84.6 kg

DRUGS (9)
  1. PROSTATE HEALTH [Concomitant]
  2. MAGNESIUM MALATE 1250 MG [Concomitant]
  3. GAIA HERBS [Concomitant]
  4. LOSARTAN 50MG [Concomitant]
     Active Substance: LOSARTAN
  5. SPIRONOLACTONE 25 MG [Concomitant]
     Active Substance: SPIRONOLACTONE
  6. VIRTUSSIN A/C [Suspect]
     Active Substance: CODEINE PHOSPHATE\GUAIFENESIN
     Indication: COUGH
     Dosage: ?          QUANTITY:3 TEASPOON(S);?
     Route: 048
     Dates: start: 20200106, end: 20200106
  7. AMLODIPINE BESYLATE. [Concomitant]
     Active Substance: AMLODIPINE BESYLATE
  8. COENZYME Q10 100 MG [Concomitant]
  9. VITAMIN D3 5000 IU [Concomitant]

REACTIONS (2)
  - Abdominal pain [None]
  - Abdominal distension [None]

NARRATIVE: CASE EVENT DATE: 20200106
